FAERS Safety Report 9732063 (Version 1)
Quarter: 2013Q4

REPORT INFORMATION
  Report Type: Spontaneous
  Country: US (occurrence: None)
  Receive Date: 20131204
  Receipt Date: 20131204
  Transmission Date: 20140711
  Serious: Yes (Death)
  Sender: FDA-Public Use
  Company Number: None

PATIENT
  Age: 70 Year
  Sex: Male

DRUGS (1)
  1. STIVARGA 40 MG TABS [Suspect]
     Indication: RECTAL CANCER
     Dosage: 80 MG DAILY FOR 21 DAYS ON , 7 PO
     Route: 048
     Dates: start: 20130701, end: 20131117

REACTIONS (1)
  - Death [None]
